FAERS Safety Report 15214310 (Version 8)
Quarter: 2018Q4

REPORT INFORMATION
  Report Type: Report from Study
  Country: CA (occurrence: CA)
  Receive Date: 20180730
  Receipt Date: 20181225
  Transmission Date: 20190204
  Serious: Yes (Other)
  Sender: FDA-Public Use
  Company Number: PHHY2015CA052440

PATIENT
  Age: 79 Year
  Sex: Male

DRUGS (5)
  1. SANDOSTATIN LAR DEPOT [Suspect]
     Active Substance: OCTREOTIDE ACETATE
     Indication: METASTATIC CARCINOID TUMOUR
     Dosage: 20 MG, QMO
     Route: 030
     Dates: start: 20150326
  2. SANDOSTATIN LAR DEPOT [Suspect]
     Active Substance: OCTREOTIDE ACETATE
     Dosage: 30 MG, QMO
     Route: 030
  3. SANDOSTATIN LAR DEPOT [Suspect]
     Active Substance: OCTREOTIDE ACETATE
     Dosage: 60 MG, QMO (EVERY 4 WEEKS)
     Route: 030
  4. SANDOSTATIN LAR DEPOT [Suspect]
     Active Substance: OCTREOTIDE ACETATE
     Dosage: 40 MG, QMO
     Route: 030
     Dates: start: 20161202, end: 20161202
  5. SANDOSTATIN LAR DEPOT [Suspect]
     Active Substance: OCTREOTIDE ACETATE
     Dosage: 60 MG, QMO (EVERY 4 WEEKS)
     Route: 030
     Dates: start: 20170102

REACTIONS (17)
  - Metastatic carcinoid tumour [Unknown]
  - Influenza [Recovering/Resolving]
  - Blood pressure systolic increased [Unknown]
  - Urinary tract obstruction [Unknown]
  - Body temperature decreased [Unknown]
  - Injection site pain [Unknown]
  - Abdominal pain [Recovered/Resolved]
  - Heart rate decreased [Unknown]
  - Post procedural haemorrhage [Unknown]
  - Blood pressure increased [Unknown]
  - Cholelithiasis [Unknown]
  - Nasopharyngitis [Recovering/Resolving]
  - Blood urine present [Unknown]
  - Drug ineffective [Unknown]
  - Bile duct obstruction [Unknown]
  - Malignant neoplasm progression [Unknown]
  - Arthralgia [Unknown]

NARRATIVE: CASE EVENT DATE: 20151005
